FAERS Safety Report 16735980 (Version 5)
Quarter: 2020Q1

REPORT INFORMATION
  Report Type: Spontaneous
  Country: US (occurrence: US)
  Receive Date: 20190823
  Receipt Date: 20200309
  Transmission Date: 20200409
  Serious: No
  Sender: FDA-Public Use
  Company Number: US-PFIZER INC-2018524783

PATIENT
  Age: 69 Year
  Sex: Female
  Weight: 84 kg

DRUGS (2)
  1. LYRICA [Suspect]
     Active Substance: PREGABALIN
     Indication: SCIATICA
  2. LYRICA [Suspect]
     Active Substance: PREGABALIN
     Indication: BACK PAIN
     Dosage: 150 MG, 1X/DAY
     Route: 048

REACTIONS (4)
  - Withdrawal syndrome [Unknown]
  - Influenza [Unknown]
  - Malaise [Unknown]
  - Nausea [Unknown]
